FAERS Safety Report 25124196 (Version 2)
Quarter: 2025Q4

REPORT INFORMATION
  Report Type: Spontaneous
  Country: US (occurrence: US)
  Receive Date: 20250326
  Receipt Date: 20251128
  Transmission Date: 20260117
  Serious: No
  Sender: SANOFI AVENTIS
  Company Number: US-SA-2025SA086862

PATIENT
  Age: 39 Year
  Sex: Male

DRUGS (1)
  1. DUPIXENT [Suspect]
     Active Substance: DUPILUMAB
     Indication: Dermatitis atopic
     Dosage: 300 MG, QOW
     Route: 058

REACTIONS (9)
  - Skin haemorrhage [Unknown]
  - Skin weeping [Unknown]
  - Skin fissures [Unknown]
  - Dry skin [Recovering/Resolving]
  - Dermatitis [Unknown]
  - Skin exfoliation [Recovering/Resolving]
  - Pruritus [Unknown]
  - Erythema [Unknown]
  - Oral herpes [Unknown]

NARRATIVE: CASE EVENT DATE: 20250301
